FAERS Safety Report 10033279 (Version 1)
Quarter: 2014Q1

REPORT INFORMATION
  Report Type: Spontaneous
  Country: FR (occurrence: FR)
  Receive Date: 20140324
  Receipt Date: 20140324
  Transmission Date: 20141002
  Serious: Yes (Hospitalization, Disabling)
  Sender: FDA-Public Use
  Company Number: FR-TEVA-468578ISR

PATIENT
  Age: 54 Year
  Sex: Male
  Weight: 92 kg

DRUGS (14)
  1. DOXORUBICINE TEVA [Suspect]
     Dosage: 50 MILLIGRAM DAILY; FIRST CHEMOEMBOLISATION COURSE
     Route: 013
     Dates: start: 200804, end: 200804
  2. DOXORUBICINE TEVA [Suspect]
     Dosage: 50 MILLIGRAM DAILY; SECOND CHEMOEMBOLISATION COURSE
     Route: 013
     Dates: start: 20080606, end: 20080606
  3. DOXORUBICINE TEVA [Suspect]
     Dosage: 50 MILLIGRAM DAILY; THIRD CHEMOEMBOLISATION COURSE
     Route: 013
     Dates: start: 20080718, end: 20080718
  4. LIPIODOL [Suspect]
     Dosage: 20 ML DAILY; FIRST CHEMOEMBOLISATION COURSE
     Route: 013
     Dates: start: 200804, end: 200804
  5. LIPIODOL [Suspect]
     Dosage: 20 ML DAILY; SECOND CHEMOEMBOLISATION COURSE
     Route: 013
     Dates: start: 20080606, end: 20080606
  6. LIPIODOL [Suspect]
     Dosage: 20 ML DAILY; THIRD CHEMOEMBOLISATION COURSE
     Route: 013
     Dates: start: 20080718, end: 20080718
  7. ULTIVA [Concomitant]
     Indication: ANAESTHESIA
     Dosage: 190 MICROGRAM DAILY;
     Route: 042
     Dates: start: 20080718, end: 20080718
  8. PROPOFOL [Concomitant]
     Indication: ANAESTHESIA
     Dosage: 235 MILLIGRAM DAILY;
     Route: 042
     Dates: start: 20080718, end: 20080718
  9. ZEFFIX [Concomitant]
     Indication: CHRONIC HEPATITIS B
     Dosage: 100 MILLIGRAM DAILY;
     Route: 048
  10. CURASPON [Concomitant]
     Dosage: FIRST CHEMOEMBOLISATION COURSE
     Dates: start: 200804, end: 200804
  11. CURASPON [Concomitant]
     Dosage: SECOND CHEMOEMBOLISATION COURSE
     Dates: start: 20080606, end: 20080606
  12. ACUPAN [Concomitant]
     Dosage: DURING ANAESTHETIC
     Dates: start: 20080718, end: 20080718
  13. PROFENID [Concomitant]
     Dosage: DURING ANAESTHETIC
     Dates: start: 20080718, end: 20080718
  14. PERFALGAN [Concomitant]

REACTIONS (3)
  - Cauda equina syndrome [Not Recovered/Not Resolved]
  - Paraplegia [Not Recovered/Not Resolved]
  - Bladder disorder [Unknown]
